FAERS Safety Report 10269684 (Version 1)
Quarter: 2014Q2

REPORT INFORMATION
  Report Type: Spontaneous
  Country: IN (occurrence: None)
  Receive Date: 20140625
  Receipt Date: 20140625
  Transmission Date: 20141212
  Serious: Yes (Hospitalization)
  Sender: FDA-Public Use
  Company Number: IN-ALKEM-000616

PATIENT
  Age: 50 Year
  Sex: Female

DRUGS (4)
  1. MYCOPHENOLATE MOFETIL [Suspect]
     Indication: RENAL TRANSPLANT
     Dosage: 1.00000000-G-2.00? TIMES PER-1.0DAYS
  2. BASILIXIMAB [Suspect]
     Indication: RENAL TRANSPLANT
  3. PREDNISOLONE [Suspect]
     Indication: RENAL TRANSPLANT
  4. TACROLIMUS [Suspect]
     Indication: RENAL TRANSPLANT
     Dosage: 5.00000000-MG-1.0DAYS

REACTIONS (14)
  - Pyrexia [None]
  - Headache [None]
  - Mouth ulceration [None]
  - Dysphagia [None]
  - Somnolence [None]
  - Muscular weakness [None]
  - Hemiparesis [None]
  - VIIth nerve paralysis [None]
  - Scedosporium infection [None]
  - Tuberculosis [None]
  - Cytomegalovirus infection [None]
  - Oesophageal ulcer [None]
  - Dysarthria [None]
  - Upper motor neurone lesion [None]
